FAERS Safety Report 20769266 (Version 2)
Quarter: 2022Q2

REPORT INFORMATION
  Report Type: Report from Study
  Country: CA (occurrence: CA)
  Receive Date: 20220429
  Receipt Date: 20220517
  Transmission Date: 20220721
  Serious: Yes (Hospitalization)
  Sender: FDA-Public Use
  Company Number: CA-JNJFOC-20220427800

PATIENT
  Age: 20 Year
  Sex: Male

DRUGS (2)
  1. REMICADE [Suspect]
     Active Substance: INFLIXIMAB
     Indication: Colitis ulcerative
     Dosage: WEEK 0
     Route: 042
     Dates: start: 20220409
  2. REMICADE [Suspect]
     Active Substance: INFLIXIMAB
     Dosage: WEEK 2 LOADING DOSE BE 10 MG/KG.?ON 21-APR-2022, PATIENT RECEIVED 2ND INFLIXIMAB RECOMBINANT INFUSIO
     Route: 042

REACTIONS (5)
  - Colectomy [Unknown]
  - Clostridium difficile infection [Unknown]
  - Colitis ulcerative [Recovering/Resolving]
  - Off label use [Unknown]
  - Incorrect dose administered [Unknown]

NARRATIVE: CASE EVENT DATE: 20220101
